FAERS Safety Report 6739055-8 (Version None)
Quarter: 2010Q2

REPORT INFORMATION
  Report Type: 
  Country: None (occurrence: None)
  Receive Date: 20100524
  Receipt Date: 20100524
  Transmission Date: 20101027
  Serious: Yes (Life-Threatening, Hospitalization)
  Sender: FDA-Public Use
  Company Number: None

PATIENT
  Age: 57 Year
  Sex: Male
  Weight: 60 kg

DRUGS (3)
  1. CARBAMAZEPINE [Suspect]
     Indication: HEADACHE
     Dosage: 1 TABLET EACH TIME TWICE DAILY PO
     Route: 048
     Dates: start: 20100421, end: 20100430
  2. CARBAMAZEPINE [Suspect]
     Indication: HYPOAESTHESIA FACIAL
     Dosage: 1 TABLET EACH TIME TWICE DAILY PO
     Route: 048
     Dates: start: 20100421, end: 20100430
  3. TYLENOL [Concomitant]

REACTIONS (1)
  - STEVENS-JOHNSON SYNDROME [None]
